FAERS Safety Report 8960795 (Version 1)
Quarter: 2012Q4

REPORT INFORMATION
  Report Type: 
  Country: US (occurrence: US)
  Receive Date: 20121212
  Receipt Date: 20121212
  Transmission Date: 20130627
  Serious: No
  Sender: FDA-Public Use
  Company Number: US-PFIZER INC-2012312163

PATIENT
  Age: 77 Year
  Sex: Male
  Weight: 98 kg

DRUGS (2)
  1. LIPITOR [Suspect]
     Dosage: UNK
  2. NIASPAN [Suspect]
     Indication: HIGH CHOLESTEROL
     Dosage: 500 mg, UNK
     Dates: start: 201207

REACTIONS (1)
  - Pain in extremity [Unknown]
